FAERS Safety Report 16956827 (Version 1)
Quarter: 2019Q4

REPORT INFORMATION
  Report Type: Spontaneous
  Country: US (occurrence: US)
  Receive Date: 20191023
  Receipt Date: 20191023
  Transmission Date: 20200122
  Serious: Yes (Hospitalization)
  Sender: FDA-Public Use
  Company Number: None

PATIENT
  Age: 43 Year
  Sex: Male
  Weight: 75.5 kg

DRUGS (1)
  1. 0.9% SODIUM CHLORIDE [Suspect]
     Active Substance: SODIUM CHLORIDE
     Indication: ILL-DEFINED DISORDER
     Dosage: ?          QUANTITY:12 1000ML;?
     Route: 042
     Dates: start: 20191019, end: 20191023

REACTIONS (2)
  - Iatrogenic infection [None]
  - Product contamination [None]

NARRATIVE: CASE EVENT DATE: 20191020
